FAERS Safety Report 17240886 (Version 1)
Quarter: 2020Q1

REPORT INFORMATION
  Report Type: Report from Study
  Country: None (occurrence: US)
  Receive Date: 20200107
  Receipt Date: 20200107
  Transmission Date: 20200409
  Serious: Yes (Hospitalization, Other)
  Sender: FDA-Public Use
  Company Number: US-ABBVIE-20K-163-3220200-00

PATIENT
  Sex: Male

DRUGS (2)
  1. INSULIN BASAGLAR [Concomitant]
     Indication: DIABETES MELLITUS
  2. VENCLEXTA [Suspect]
     Active Substance: VENETOCLAX
     Indication: CHRONIC LYMPHOCYTIC LEUKAEMIA
     Dosage: WITH DINNER
     Route: 048
     Dates: start: 20190523

REACTIONS (4)
  - Emotional distress [Unknown]
  - Infection [Unknown]
  - Catheter placement [Unknown]
  - Loss of personal independence in daily activities [Unknown]

NARRATIVE: CASE EVENT DATE: 2019
